FAERS Safety Report 12080876 (Version 1)
Quarter: 2016Q1

REPORT INFORMATION
  Report Type: Spontaneous
  Country: US (occurrence: US)
  Receive Date: 20160216
  Receipt Date: 20160216
  Transmission Date: 20160526
  Serious: No
  Sender: FDA-Public Use
  Company Number: US-SHIRE-US201601262

PATIENT
  Sex: Female
  Weight: 68.48 kg

DRUGS (2)
  1. EFFEXOR [Concomitant]
     Active Substance: VENLAFAXINE HYDROCHLORIDE
     Indication: PRODUCT USED FOR UNKNOWN INDICATION
     Dosage: UNK, UNKNOWN
     Route: 065
  2. VYVANSE [Suspect]
     Active Substance: LISDEXAMFETAMINE DIMESYLATE
     Indication: DEPRESSION
     Dosage: 70 MG, 1X/DAY:QD
     Route: 048
     Dates: start: 2011

REACTIONS (2)
  - Product use issue [Not Recovered/Not Resolved]
  - No adverse event [Not Recovered/Not Resolved]

NARRATIVE: CASE EVENT DATE: 2011
